FAERS Safety Report 4499760-3 (Version None)
Quarter: 2004Q4

REPORT INFORMATION
  Report Type: 
  Country: None (occurrence: None)
  Receive Date: 20041112
  Receipt Date: 20041102
  Transmission Date: 20050328
  Serious: Yes (Hospitalization)
  Sender: FDA-Public Use
  Company Number: US-SOLVAY-00204003968

PATIENT
  Age: 215 Month
  Sex: Male
  Weight: 67.8 kg

DRUGS (3)
  1. CONCERTA [Concomitant]
     Indication: ATTENTION DEFICIT/HYPERACTIVITY DISORDER
     Dosage: DAILY DOSE: 72 MILLIGRAM(S)
     Route: 048
     Dates: start: 20001101
  2. ANDROGEL [Suspect]
     Indication: HYPOGONADISM
     Dosage: DAILY DOSE: 1.25 MILLIGRAM(S)
     Route: 062
     Dates: start: 20040121
  3. T-GEL [Suspect]
     Indication: HYPOGONADISM
     Dosage: DAILY DOSE: 1 MILLIGRAM(S)
     Route: 061
     Dates: start: 20030808, end: 20040120

REACTIONS (1)
  - BENIGN INTRACRANIAL HYPERTENSION [None]
